FAERS Safety Report 13792104 (Version 1)
Quarter: 2017Q3

REPORT INFORMATION
  Report Type: Spontaneous
  Country: US (occurrence: US)
  Receive Date: 20170725
  Receipt Date: 20170725
  Transmission Date: 20171127
  Serious: No
  Sender: FDA-Public Use
  Company Number: None

PATIENT
  Age: 68 Year
  Sex: Female

DRUGS (1)
  1. PROLIA [Suspect]
     Active Substance: DENOSUMAB
     Indication: OSTEOPOROSIS
     Dosage: 60MG Q 6 MONTHS SUB Q INJECTION
     Route: 058

REACTIONS (3)
  - Arthralgia [None]
  - Sleep disorder [None]
  - Pain in extremity [None]

NARRATIVE: CASE EVENT DATE: 20170725
